FAERS Safety Report 23642557 (Version 2)
Quarter: 2024Q1

REPORT INFORMATION
  Report Type: Report from Study
  Country: US (occurrence: US)
  Receive Date: 20240318
  Receipt Date: 20240326
  Transmission Date: 20240410
  Serious: Yes (Hospitalization)
  Sender: FDA-Public Use
  Company Number: US-BAXTER-2024BAX014644

PATIENT
  Age: 61 Year
  Sex: Female
  Weight: 73.9 kg

DRUGS (5)
  1. DOXIL [Suspect]
     Active Substance: DOXORUBICIN HYDROCHLORIDE
     Indication: Breast cancer female
     Dosage: 30 MG/M2, CYCLIC (ONCE EVERY 28 DAYS)
     Route: 042
     Dates: start: 20230606, end: 20240213
  2. DOXIL [Suspect]
     Active Substance: DOXORUBICIN HYDROCHLORIDE
     Dosage: UNK
     Route: 065
     Dates: start: 20240312
  3. BINIMETINIB [Suspect]
     Active Substance: BINIMETINIB
     Indication: Breast cancer female
     Dosage: 15 MG, 2X/DAY, D-15
     Route: 048
     Dates: start: 20230523, end: 20240217
  4. BINIMETINIB [Suspect]
     Active Substance: BINIMETINIB
     Dosage: UNK
     Route: 065
     Dates: start: 20240317
  5. AVELUMAB [Suspect]
     Active Substance: AVELUMAB
     Indication: Breast cancer female
     Dosage: 10 MG/KG, CYCLIC (ONCE EVERY 28 DAYS)
     Route: 042
     Dates: start: 20230606, end: 20240213

REACTIONS (1)
  - Colitis [Recovered/Resolved]

NARRATIVE: CASE EVENT DATE: 20240218
